FAERS Safety Report 9225298 (Version 1)
Quarter: 2013Q2

REPORT INFORMATION
  Report Type: Spontaneous
  Country: NL (occurrence: NL)
  Receive Date: 20130411
  Receipt Date: 20130411
  Transmission Date: 20140414
  Serious: Yes (Other)
  Sender: FDA-Public Use
  Company Number: NL-ROCHE-1204971

PATIENT
  Age: 48 Year
  Sex: Male

DRUGS (2)
  1. ZELBORAF [Suspect]
     Indication: MALIGNANT MELANOMA
     Route: 048
     Dates: start: 20121112, end: 20130402
  2. ZELBORAF [Suspect]
     Dosage: REDUCED DOSE
     Route: 048

REACTIONS (3)
  - Atrial fibrillation [Recovered/Resolved]
  - Liver disorder [Not Recovered/Not Resolved]
  - Thrombocytopenia [Not Recovered/Not Resolved]
